FAERS Safety Report 7444913-5 (Version None)
Quarter: 2011Q2

REPORT INFORMATION
  Report Type: 
  Country: None (occurrence: None)
  Receive Date: 20110426
  Receipt Date: 20110426
  Transmission Date: 20111010
  Serious: Yes (Other)
  Sender: FDA-Public Use
  Company Number: None

PATIENT
  Age: 54 Year
  Sex: Female
  Weight: 74.3899 kg

DRUGS (1)
  1. AVELOX [Suspect]
     Indication: SINUSITIS
     Dosage: 1 DAILY PO
     Route: 048
     Dates: start: 20110419, end: 20110423

REACTIONS (4)
  - SYNCOPE [None]
  - ANXIETY [None]
  - ARTHRALGIA [None]
  - BLOOD PRESSURE DECREASED [None]
